FAERS Safety Report 11661786 (Version 1)
Quarter: 2015Q4

REPORT INFORMATION
  Report Type: Spontaneous
  Country: GB (occurrence: GB)
  Receive Date: 20151026
  Receipt Date: 20151026
  Transmission Date: 20160304
  Serious: Yes (Other)
  Sender: FDA-Public Use
  Company Number: GB-TEVA-602151ACC

PATIENT
  Age: 67 Year
  Sex: Male
  Weight: 80.73 kg

DRUGS (4)
  1. NOVORAPID [Concomitant]
     Active Substance: INSULIN ASPART
     Indication: TYPE 1 DIABETES MELLITUS
     Dosage: 1 DOSAGE FORMS DAILY; AT NIGHT
  2. LEVEMIR [Concomitant]
     Active Substance: INSULIN DETEMIR
     Indication: TYPE 1 DIABETES MELLITUS
     Dosage: 1 DOSAGE FORMS DAILY; AT NIGHT
  3. CLARITHROMYCIN. [Suspect]
     Active Substance: CLARITHROMYCIN
     Indication: EAR INFECTION
     Dosage: 1000 MILLIGRAM DAILY;
     Route: 048
     Dates: start: 20150925, end: 20150930
  4. STATINS [Concomitant]
     Active Substance: UNSPECIFIED INGREDIENT
     Dosage: BUT WAS TOLD NOT TO TAKE THESE WHILST ON THE?ANTIBIOTIC.

REACTIONS (3)
  - Hypoglycaemia [Recovered/Resolved]
  - Back pain [Unknown]
  - Gait disturbance [Unknown]

NARRATIVE: CASE EVENT DATE: 20150927
